FAERS Safety Report 7031496-7 (Version None)
Quarter: 2010Q4

REPORT INFORMATION
  Report Type: 
  Country: None (occurrence: None)
  Receive Date: 20101005
  Receipt Date: 20101005
  Transmission Date: 20110411
  Serious: Yes (Life-Threatening)
  Sender: FDA-Public Use
  Company Number: None

PATIENT
  Age: 63 Year
  Sex: Male
  Weight: 97.07 kg

DRUGS (2)
  1. SIMVASTATIN [Suspect]
     Indication: DIABETES MELLITUS
     Dosage: 40 MG HS PO
     Route: 048
     Dates: start: 20050126, end: 20100414
  2. SIMVASTATIN [Suspect]
     Indication: HYPERLIPIDAEMIA
     Dosage: 40 MG HS PO
     Route: 048
     Dates: start: 20050126, end: 20100414

REACTIONS (4)
  - MENTAL STATUS CHANGES [None]
  - METABOLIC ENCEPHALOPATHY [None]
  - RENAL FAILURE ACUTE [None]
  - RHABDOMYOLYSIS [None]
